FAERS Safety Report 4715957-9 (Version None)
Quarter: 2005Q3

REPORT INFORMATION
  Report Type: 
  Country: None (occurrence: None)
  Receive Date: 20050718
  Receipt Date: 20050309
  Transmission Date: 20060218
  Serious: Yes (Death)
  Sender: FDA-Public Use
  Company Number: US-BOEHRINGER INGELHEIM PHARMMACEUTICALS, INC.-2005-BP-03879BP

PATIENT
  Age: 88 Year
  Sex: Male

DRUGS (9)
  1. FLOMAX [Suspect]
     Indication: DYSURIA
     Route: 048
     Dates: start: 20040601
  2. TYLENOL W/ CODEINE NO. 3 [Concomitant]
  3. TYLENOL W/ CODEINE NO. 4 [Concomitant]
  4. PISTONIX [Concomitant]
  5. NEURONTIN [Concomitant]
  6. MOEXIPRIL HCL [Concomitant]
  7. DOXAZOSIN MESYLATE [Concomitant]
  8. AAAP-CODEINE [Concomitant]
  9. LEVOXYL [Concomitant]

REACTIONS (11)
  - CYSTITIS [None]
  - DEATH [None]
  - DYSURIA [None]
  - HALLUCINATION [None]
  - LOSS OF CONSCIOUSNESS [None]
  - PAIN [None]
  - PRURITUS [None]
  - PYREXIA [None]
  - SOMNOLENCE [None]
  - URINARY TRACT INFECTION [None]
  - WEIGHT DECREASED [None]
